FAERS Safety Report 19812282 (Version 2)
Quarter: 2021Q3

REPORT INFORMATION
  Report Type: Spontaneous
  Country: DE (occurrence: DE)
  Receive Date: 20210909
  Receipt Date: 20210921
  Transmission Date: 20211014
  Serious: Yes (Death)
  Sender: FDA-Public Use
  Company Number: DE-MYLANLABS-2021M1060187

PATIENT
  Age: 32 Year
  Sex: Female

DRUGS (6)
  1. MAXALT [Concomitant]
     Active Substance: RIZATRIPTAN BENZOATE
     Indication: MIGRAINE
     Dosage: 10 MILLIGRAM, PRN
     Dates: start: 20160128, end: 20210210
  2. TRIPTAN                            /01346901/ [Suspect]
     Active Substance: ZOLMITRIPTAN
     Indication: MIGRAINE
     Dosage: UNK
     Route: 065
  3. METOPROLOL. [Suspect]
     Active Substance: METOPROLOL
     Indication: MIGRAINE
     Dosage: 2375 MILLIGRAM, QD
     Route: 065
     Dates: start: 20151104, end: 20210210
  4. COVID?19 VACCINE NOS. [Suspect]
     Active Substance: COVID-19 VACCINE NOS
     Indication: COVID-19
     Dosage: UNK ASTRAZENECA
     Route: 065
     Dates: start: 20210225
  5. GALCANEZUMAB [Suspect]
     Active Substance: GALCANEZUMAB
     Indication: MIGRAINE
     Dosage: 120 MILLIGRAM, MONTHLY
     Route: 058
     Dates: start: 20190807, end: 20210210
  6. GALCANEZUMAB [Suspect]
     Active Substance: GALCANEZUMAB
     Dosage: UNK
     Route: 065
     Dates: start: 202010

REACTIONS (1)
  - Cerebral haemorrhage [Fatal]
